FAERS Safety Report 18040793 (Version 1)
Quarter: 2020Q3

REPORT INFORMATION
  Report Type: Spontaneous
  Country: ES (occurrence: ES)
  Receive Date: 20200717
  Receipt Date: 20200717
  Transmission Date: 20201103
  Serious: Yes (Other)
  Sender: FDA-Public Use
  Company Number: ES-009507513-2007ESP005076

PATIENT
  Sex: Female

DRUGS (4)
  1. JANUVIA [Suspect]
     Active Substance: SITAGLIPTIN PHOSPHATE
     Indication: DIABETES MELLITUS
     Dosage: 50MG/24 HOURS
     Route: 048
     Dates: start: 20200415, end: 20200629
  2. METFORMIN [Concomitant]
     Active Substance: METFORMIN HYDROCHLORIDE
  3. HYDROCHLOROTHIAZIDE. [Concomitant]
     Active Substance: HYDROCHLOROTHIAZIDE
  4. MEMANTINE. [Concomitant]
     Active Substance: MEMANTINE

REACTIONS (1)
  - Pemphigus [Recovering/Resolving]

NARRATIVE: CASE EVENT DATE: 20200429
